FAERS Safety Report 25946213 (Version 1)
Quarter: 2025Q4

REPORT INFORMATION
  Report Type: Report from Study
  Country: US (occurrence: US)
  Receive Date: 20251022
  Receipt Date: 20251022
  Transmission Date: 20260117
  Serious: Yes (Other)
  Sender: ABBVIE
  Company Number: US-ABBVIE-6510666

PATIENT
  Age: 65 Year
  Sex: Female

DRUGS (1)
  1. RINVOQ [Suspect]
     Active Substance: UPADACITINIB
     Indication: Rheumatoid arthritis
     Dosage: STRENGTH : 15 MG
     Route: 048
     Dates: start: 20240809

REACTIONS (5)
  - Nephrolithiasis [Unknown]
  - Respiratory tract congestion [Not Recovered/Not Resolved]
  - Ear infection [Unknown]
  - Pain [Unknown]
  - Sinusitis [Unknown]

NARRATIVE: CASE EVENT DATE: 20251001
